FAERS Safety Report 17107673 (Version 2)
Quarter: 2019Q4

REPORT INFORMATION
  Report Type: Spontaneous
  Country: US (occurrence: US)
  Receive Date: 20191203
  Receipt Date: 20191218
  Transmission Date: 20200122
  Serious: Yes (Other)
  Sender: FDA-Public Use
  Company Number: US-ALLERGAN-1948990US

PATIENT
  Sex: Male

DRUGS (2)
  1. MEMANTINE HCL - BP [Suspect]
     Active Substance: MEMANTINE
     Indication: OBSESSIVE-COMPULSIVE DISORDER
     Dosage: 10 MG, QHS
     Route: 048
     Dates: start: 201907
  2. MEMANTINE HCL - BP [Suspect]
     Active Substance: MEMANTINE
     Indication: TOURETTE^S DISORDER

REACTIONS (5)
  - Off label use [Unknown]
  - Seizure [Recovered/Resolved]
  - Feeling abnormal [Unknown]
  - Aphasia [Unknown]
  - Fatigue [Unknown]

NARRATIVE: CASE EVENT DATE: 20191125
